FAERS Safety Report 4469073-4 (Version None)
Quarter: 2004Q4

REPORT INFORMATION
  Report Type: 
  Country: None (occurrence: None)
  Receive Date: 20041006
  Receipt Date: 20041006
  Transmission Date: 20050328
  Serious: Yes (Disabling)
  Sender: FDA-Public Use
  Company Number: None

PATIENT
  Age: 39 Year
  Sex: Female

DRUGS (6)
  1. TOPAMAX [Suspect]
     Indication: NEUROPATHY
     Dosage: 12.5 MG 1/ DAILY ORAL
     Route: 048
     Dates: start: 20030708, end: 20030719
  2. TOPAMAX [Suspect]
     Indication: PAIN
     Dosage: 12.5 MG 1/ DAILY ORAL
     Route: 048
     Dates: start: 20030708, end: 20030719
  3. BACLOFEN [Concomitant]
  4. TRILEPTAL [Concomitant]
  5. BEXTRA [Concomitant]
  6. AMITRIPTYLINE HCL [Concomitant]

REACTIONS (1)
  - ANGLE CLOSURE GLAUCOMA [None]
